FAERS Safety Report 5754684-6 (Version None)
Quarter: 2008Q2

REPORT INFORMATION
  Report Type: 
  Country: None (occurrence: None)
  Receive Date: 20080527
  Receipt Date: 20080507
  Transmission Date: 20081010
  Serious: Yes (Hospitalization)
  Sender: FDA-Public Use
  Company Number: 2008-00002

PATIENT
  Age: 6 Year
  Sex: Male
  Weight: 18.1439 kg

DRUGS (1)
  1. HURT-FREE CLEANSING AND INFECTION PROTECTION FOAM [Suspect]
     Indication: ANTIBIOTIC PROPHYLAXIS
     Dosage: MOUTHFUL, 1X, 047
     Dates: start: 20080423

REACTIONS (5)
  - ACCIDENTAL DRUG INTAKE BY CHILD [None]
  - BURN OESOPHAGEAL [None]
  - BURN OF INTERNAL ORGANS [None]
  - GASTRIC DISORDER [None]
  - HAEMATEMESIS [None]
